FAERS Safety Report 25236328 (Version 1)
Quarter: 2025Q2

REPORT INFORMATION
  Report Type: Report from Study
  Country: US (occurrence: US)
  Receive Date: 20250424
  Receipt Date: 20250424
  Transmission Date: 20250717
  Serious: Yes (Other)
  Sender: UCB
  Company Number: US-UCBSA-2025001789

PATIENT
  Sex: Male

DRUGS (1)
  1. BIMEKIZUMAB [Suspect]
     Active Substance: BIMEKIZUMAB
     Indication: Psoriatic arthropathy
     Dosage: 160 MILLIGRAM, EV 4 WEEKS
     Route: 058
     Dates: start: 20241210

REACTIONS (17)
  - Skin cancer [Not Recovered/Not Resolved]
  - Pigmentation disorder [Recovering/Resolving]
  - Insomnia [Recovering/Resolving]
  - Fatigue [Not Recovered/Not Resolved]
  - Diarrhoea [Recovered/Resolved]
  - Oral herpes [Unknown]
  - Illness [Recovered/Resolved]
  - Rhinorrhoea [Unknown]
  - Headache [Unknown]
  - Odynophagia [Unknown]
  - Lacrimation increased [Unknown]
  - Pain [Unknown]
  - Chills [Unknown]
  - SARS-CoV-2 test positive [Recovered/Resolved]
  - Injection site pain [Not Recovered/Not Resolved]
  - Injection site bruising [Recovered/Resolved]
  - Therapeutic product effect incomplete [Unknown]

NARRATIVE: CASE EVENT DATE: 20240101
